FAERS Safety Report 4649139-6 (Version None)
Quarter: 2005Q2

REPORT INFORMATION
  Report Type: 
  Country: None (occurrence: None)
  Receive Date: 20050429
  Receipt Date: 20050422
  Transmission Date: 20051028
  Serious: Yes (Hospitalization)
  Sender: FDA-Public Use
  Company Number: B0379502A

PATIENT
  Age: 72 Year
  Sex: Male
  Weight: 103 kg

DRUGS (4)
  1. QUILONORM [Suspect]
     Indication: DEPRESSION
     Dosage: 450MG PER DAY
     Route: 048
     Dates: end: 20030113
  2. AMILORIDE HCL AND HYDROCHLOROTHIAZIDE [Concomitant]
     Indication: HYPERTENSION
     Dosage: 50MG PER DAY
     Route: 048
  3. MAPROTILINE [Concomitant]
     Indication: DEPRESSION
     Dosage: 75MG PER DAY
     Route: 048
  4. TAMSULOSIN [Concomitant]
     Indication: BENIGN PROSTATIC HYPERPLASIA
     Dosage: 400MG PER DAY
     Route: 048

REACTIONS (4)
  - DRUG LEVEL INCREASED [None]
  - GRAND MAL CONVULSION [None]
  - PARKINSONISM [None]
  - STUPOR [None]
